FAERS Safety Report 23358146 (Version 1)
Quarter: 2023Q4

REPORT INFORMATION
  Report Type: Spontaneous
  Country: US (occurrence: None)
  Receive Date: 20231230
  Receipt Date: 20231230
  Transmission Date: 20240109
  Serious: Yes (Hospitalization)
  Sender: FDA-Public Use
  Company Number: None

PATIENT
  Sex: Female

DRUGS (4)
  1. OPSUMIT [Suspect]
     Active Substance: MACITENTAN
     Indication: Pulmonary arterial hypertension
     Dosage: FREQUENCY : DAILY;?
     Route: 048
     Dates: start: 201706
  2. DEVICE [Concomitant]
     Active Substance: DEVICE
  3. ADEMPAS [Concomitant]
  4. REMODULIN MDV [Concomitant]

REACTIONS (2)
  - Croup infectious [None]
  - Pain [None]
